FAERS Safety Report 8596605-7 (Version None)
Quarter: 2012Q3

REPORT INFORMATION
  Report Type: 
  Country: None (occurrence: None)
  Receive Date: 20120815
  Receipt Date: 20120810
  Transmission Date: 20120928
  Serious: Yes (Hospitalization, Other)
  Sender: FDA-Public Use
  Company Number: US-US-EMD SERONO, INC.-7127083

PATIENT
  Sex: Male

DRUGS (3)
  1. UNSPECIFIED MEDCIATION [Concomitant]
     Indication: HYPERTENSION
  2. EGRIFTA [Suspect]
     Indication: PRODUCT USED FOR UNKNOWN INDICATION
     Dates: start: 20120101
  3. VICODIN [Concomitant]
     Indication: PAIN

REACTIONS (2)
  - RENAL FAILURE [None]
  - PULMONARY OEDEMA [None]
